FAERS Safety Report 5921103-6 (Version None)
Quarter: 2008Q4

REPORT INFORMATION
  Report Type: 
  Country: None (occurrence: None)
  Receive Date: 20081016
  Receipt Date: 20081003
  Transmission Date: 20090506
  Serious: Yes (Hospitalization)
  Sender: FDA-Public Use
  Company Number: SE-ELI_LILLY_AND_COMPANY-SE200810001837

PATIENT
  Sex: Female

DRUGS (2)
  1. CYMBALTA [Suspect]
     Indication: DEPRESSION
     Dosage: UNK, UNKNOWN
     Route: 048
     Dates: start: 20070101, end: 20080817
  2. EDRONAX [Concomitant]
     Dosage: UNK, UNKNOWN
     Route: 048
     Dates: start: 20070101, end: 20080814

REACTIONS (1)
  - CARDIOMYOPATHY [None]
